FAERS Safety Report 6322188-8 (Version None)
Quarter: 2009Q3

REPORT INFORMATION
  Report Type: 
  Country: None (occurrence: None)
  Receive Date: 20090821
  Receipt Date: 20090821
  Transmission Date: 20100115
  Serious: Yes (Hospitalization)
  Sender: FDA-Public Use
  Company Number: None

PATIENT
  Age: 61 Year
  Sex: Male
  Weight: 109 kg

DRUGS (2)
  1. WARFARIN SODIUM [Suspect]
     Indication: CEREBROVASCULAR ACCIDENT
     Dates: start: 20080101, end: 20090728
  2. WARFARIN SODIUM [Suspect]
     Indication: PULMONARY EMBOLISM
     Dates: start: 20080101, end: 20090728

REACTIONS (5)
  - ARTHRALGIA [None]
  - CONVULSION [None]
  - HAEMORRHAGE [None]
  - MUSCLE HAEMORRHAGE [None]
  - RETROPERITONEAL HAEMORRHAGE [None]
